FAERS Safety Report 21886105 (Version 1)
Quarter: 2023Q1

REPORT INFORMATION
  Report Type: Spontaneous
  Country: US (occurrence: US)
  Receive Date: 20230119
  Receipt Date: 20230119
  Transmission Date: 20230418
  Serious: No
  Sender: FDA-Public Use
  Company Number: US-BAYER-2023A008412

PATIENT
  Age: 64 Year
  Sex: Male

DRUGS (1)
  1. MIRALAX [Suspect]
     Active Substance: POLYETHYLENE GLYCOL 3350
     Indication: Faeces soft
     Dosage: 1 TEASPOON A DAY MIXED WITH COFFEE IN THE MORNING.
     Route: 048

REACTIONS (2)
  - Abdominal pain [Unknown]
  - Product prescribing issue [Unknown]
